FAERS Safety Report 8596711-7 (Version None)
Quarter: 2012Q3

REPORT INFORMATION
  Report Type: 
  Country: None (occurrence: None)
  Receive Date: 20120815
  Receipt Date: 20120803
  Transmission Date: 20120928
  Serious: Yes (Other)
  Sender: FDA-Public Use
  Company Number: DE-ELI_LILLY_AND_COMPANY-DE201205001375

PATIENT
  Sex: Male

DRUGS (6)
  1. AMLODIPINE BESYLATE [Concomitant]
  2. METFORMIN HYDROCHLORIDE [Concomitant]
  3. LIMPTAR [Concomitant]
  4. TORSEMIDE [Concomitant]
  5. HYDROMORPHONE HYDROCHLORIDE [Concomitant]
  6. BYETTA [Suspect]
     Indication: DIABETES MELLITUS
     Dosage: 5 UG, UNK
     Route: 058
     Dates: start: 20120401

REACTIONS (6)
  - GENERAL PHYSICAL HEALTH DETERIORATION [None]
  - WEIGHT DECREASED [None]
  - INSOMNIA [None]
  - BLOOD GLUCOSE INCREASED [None]
  - FLUID RETENTION [None]
  - GLYCOSYLATED HAEMOGLOBIN INCREASED [None]
